FAERS Safety Report 16071897 (Version 2)
Quarter: 2021Q1

REPORT INFORMATION
  Report Type: Spontaneous
  Country: US (occurrence: US)
  Receive Date: 20190314
  Receipt Date: 20210106
  Transmission Date: 20210419
  Serious: No
  Sender: FDA-Public Use
  Company Number: US-ASTRAZENECA-2019SE28841

PATIENT
  Age: 45 Year
  Sex: Male
  Weight: 99.8 kg

DRUGS (5)
  1. FARXIGA [Suspect]
     Active Substance: DAPAGLIFLOZIN PROPANEDIOL
     Indication: BLOOD GLUCOSE ABNORMAL
     Route: 048
     Dates: start: 201809, end: 201811
  2. METFORMIN [Concomitant]
     Active Substance: METFORMIN HYDROCHLORIDE
     Indication: DIABETES MELLITUS
     Route: 048
     Dates: start: 2008
  3. JANUVIA [Concomitant]
     Active Substance: SITAGLIPTIN PHOSPHATE
     Indication: DIABETES MELLITUS
     Route: 048
     Dates: start: 201706
  4. GLIPIZIDE. [Concomitant]
     Active Substance: GLIPIZIDE
     Indication: DIABETES MELLITUS
     Route: 048
     Dates: start: 2008
  5. FARXIGA [Suspect]
     Active Substance: DAPAGLIFLOZIN PROPANEDIOL
     Indication: BLOOD GLUCOSE ABNORMAL
     Route: 048

REACTIONS (7)
  - Intentional product misuse [Unknown]
  - Hypersomnia [Recovered/Resolved]
  - Sexual dysfunction [Recovered/Resolved]
  - Disturbance in sexual arousal [Not Recovered/Not Resolved]
  - Penis disorder [Recovered/Resolved]
  - Pain [Recovered/Resolved]
  - Acquired phimosis [Recovered/Resolved]

NARRATIVE: CASE EVENT DATE: 2018
